FAERS Safety Report 9357279 (Version 1)
Quarter: 2013Q2

REPORT INFORMATION
  Report Type: Spontaneous
  Country: US (occurrence: US)
  Receive Date: 20130620
  Receipt Date: 20130620
  Transmission Date: 20140414
  Serious: Yes (Hospitalization, Other)
  Sender: FDA-Public Use
  Company Number: US-JNJFOC-20130607235

PATIENT
  Age: 43 Year
  Sex: Male
  Weight: 97 kg

DRUGS (14)
  1. DARUNAVIR [Suspect]
     Indication: HIV INFECTION
     Route: 048
     Dates: start: 2009
  2. DARUNAVIR [Suspect]
     Indication: HIV INFECTION
     Route: 048
     Dates: start: 200901, end: 2009
  3. RITONAVIR [Interacting]
     Indication: HIV INFECTION
     Route: 065
     Dates: start: 200901, end: 2009
  4. RITONAVIR [Interacting]
     Indication: HIV INFECTION
     Route: 065
     Dates: start: 2009
  5. ARIPIPRAZOLE [Interacting]
     Indication: ANXIETY
     Route: 065
     Dates: start: 200908
  6. ARIPIPRAZOLE [Interacting]
     Indication: ANXIETY
     Route: 065
  7. ARIPIPRAZOLE [Interacting]
     Indication: DEPRESSION
     Route: 065
  8. ARIPIPRAZOLE [Interacting]
     Indication: DEPRESSION
     Route: 065
     Dates: start: 200908
  9. DULOXETINE [Interacting]
     Indication: ANXIETY
     Route: 065
     Dates: start: 200908
  10. DULOXETINE [Interacting]
     Indication: DEPRESSION
     Route: 065
     Dates: start: 200908
  11. EMTRICITABINE W/TENOFOVIR [Suspect]
     Indication: ACQUIRED IMMUNODEFICIENCY SYNDROME
     Dosage: 200/300 MG
     Route: 065
     Dates: start: 200901, end: 2009
  12. EMTRICITABINE W/TENOFOVIR [Suspect]
     Indication: ACQUIRED IMMUNODEFICIENCY SYNDROME
     Dosage: 200/300 MG
     Route: 065
     Dates: start: 2009
  13. BUSPIRONE [Suspect]
     Indication: ANXIETY
     Route: 065
     Dates: start: 200908
  14. BUSPIRONE [Suspect]
     Indication: DEPRESSION
     Route: 065
     Dates: start: 200908

REACTIONS (12)
  - Lymphadenopathy [Unknown]
  - Pyrexia [Recovering/Resolving]
  - Abdominal pain [Recovering/Resolving]
  - Cough [Recovering/Resolving]
  - Musculoskeletal stiffness [Recovering/Resolving]
  - Back pain [Recovering/Resolving]
  - Nausea [Recovering/Resolving]
  - Vision blurred [Recovering/Resolving]
  - Drug interaction [Unknown]
  - Headache [Unknown]
  - Drug level increased [Unknown]
  - Memory impairment [Unknown]
